FAERS Safety Report 13928260 (Version 1)
Quarter: 2017Q3

REPORT INFORMATION
  Report Type: Spontaneous
  Country: US (occurrence: None)
  Receive Date: 20170831
  Receipt Date: 20170831
  Transmission Date: 20171127
  Serious: No
  Sender: FDA-Public Use
  Company Number: None

PATIENT
  Age: 84 Year
  Sex: Female

DRUGS (1)
  1. PROLIA [Suspect]
     Active Substance: DENOSUMAB
     Indication: OSTEOARTHRITIS
     Dosage: 60MG EVERY 6 MONTHS SQ
     Route: 058
     Dates: start: 20170221, end: 20170225

REACTIONS (2)
  - Arthralgia [None]
  - Influenza like illness [None]

NARRATIVE: CASE EVENT DATE: 20170225
